FAERS Safety Report 4317149-4 (Version None)
Quarter: 2004Q1

REPORT INFORMATION
  Report Type: 
  Country: None (occurrence: None)
  Receive Date: 20040312
  Receipt Date: 20040227
  Transmission Date: 20041129
  Serious: Yes (Hospitalization)
  Sender: FDA-Public Use
  Company Number: 2004014167

PATIENT
  Age: 48 Year
  Sex: Female

DRUGS (2)
  1. ZOLOFT [Suspect]
     Indication: DEPRESSION
     Dosage: 50 MG (DAILY), ORAL
     Route: 048
     Dates: start: 20040101, end: 20040101
  2. LEVOTHYROXINE SODIUM [Concomitant]

REACTIONS (5)
  - ANXIETY [None]
  - CHEST PAIN [None]
  - FEELING ABNORMAL [None]
  - GASTRIC DISORDER [None]
  - LATENT TETANY [None]
